FAERS Safety Report 20032416 (Version 1)
Quarter: 2021Q4

REPORT INFORMATION
  Report Type: Spontaneous
  Country: US (occurrence: US)
  Receive Date: 20211103
  Receipt Date: 20211103
  Transmission Date: 20220303
  Serious: Yes (Hospitalization, Other)
  Sender: FDA-Public Use
  Company Number: US-UNITED THERAPEUTICS-UNT-2021-021936

PATIENT
  Sex: Male
  Weight: 95.692 kg

DRUGS (2)
  1. TYVASO [Suspect]
     Active Substance: TREPROSTINIL
     Indication: Pulmonary arterial hypertension
     Dosage: UNK
     Dates: start: 20210610
  2. TYVASO [Suspect]
     Active Substance: TREPROSTINIL
     Dosage: 18-90 ?G, QID
     Dates: start: 2021, end: 2021

REACTIONS (4)
  - Fall [Recovered/Resolved with Sequelae]
  - Oedema peripheral [Not Recovered/Not Resolved]
  - Skin exfoliation [Unknown]
  - Off label use [Unknown]

NARRATIVE: CASE EVENT DATE: 20210101
